FAERS Safety Report 12957042 (Version 1)
Quarter: 2016Q4

REPORT INFORMATION
  Report Type: Spontaneous
  Country: TR (occurrence: TR)
  Receive Date: 20161118
  Receipt Date: 20161118
  Transmission Date: 20170207
  Serious: Yes (Other)
  Sender: FDA-Public Use
  Company Number: ALCN2016TR007668

PATIENT
  Age: 35 Year
  Sex: Female

DRUGS (8)
  1. EXOCIN [Suspect]
     Active Substance: OFLOXACIN
     Indication: ACANTHAMOEBA KERATITIS
     Dosage: 6 DF, BID
     Route: 047
  2. DEXAMETHASONE. [Suspect]
     Active Substance: DEXAMETHASONE
     Indication: EYE INFLAMMATION
     Dosage: 2 DF, QD
     Route: 047
  3. GOLDEN EYE [Suspect]
     Active Substance: PROPAMIDINE ISETHIONATE
     Indication: ACANTHAMOEBA KERATITIS
     Dosage: 1 DF, QD
     Route: 047
  4. ATROPINE. [Suspect]
     Active Substance: ATROPINE
     Indication: ACANTHAMOEBA KERATITIS
     Dosage: 3 DF, QD
     Route: 047
  5. NEOSPORIN [Suspect]
     Active Substance: BACITRACIN ZINC\NEOMYCIN SULFATE\POLYMYXIN B SULFATE
     Indication: ACANTHAMOEBA KERATITIS
     Dosage: 1 DRP, QH
     Route: 047
  6. ITRASPOR [Concomitant]
     Active Substance: ITRACONAZOLE
     Indication: ACANTHAMOEBA KERATITIS
     Dosage: 1 DF, QD
     Route: 048
  7. TOBRAMYCIN. [Suspect]
     Active Substance: TOBRAMYCIN
     Indication: ACANTHAMOEBA KERATITIS
     Dosage: 1 DRP, QH
     Route: 047
  8. GOLDEN EYE [Suspect]
     Active Substance: PROPAMIDINE ISETHIONATE
     Indication: ACANTHAMOEBA KERATITIS
     Dosage: 1 DRP, QH
     Route: 047

REACTIONS (10)
  - Inflammation [None]
  - Post procedural complication [None]
  - Transplant rejection [None]
  - Intraocular pressure increased [Not Recovered/Not Resolved]
  - Condition aggravated [Unknown]
  - Visual acuity reduced [Unknown]
  - Corneal perforation [Unknown]
  - Lenticular opacities [Unknown]
  - Corneal oedema [Unknown]
  - Iris adhesions [Unknown]
